FAERS Safety Report 15383740 (Version 2)
Quarter: 2018Q4

REPORT INFORMATION
  Report Type: Spontaneous
  Country: US (occurrence: US)
  Receive Date: 20180913
  Receipt Date: 20181228
  Transmission Date: 20190204
  Serious: Yes (Hospitalization)
  Sender: FDA-Public Use
  Company Number: US-PRINSTON PHARMACEUTICAL INC.-2018PRN01271

PATIENT
  Age: 41 Year
  Sex: Male

DRUGS (2)
  1. FISH OIL [Concomitant]
     Active Substance: FISH OIL
     Dosage: UNK, 1X/DAY
  2. VALSARTAN. [Suspect]
     Active Substance: VALSARTAN
     Indication: HYPERTENSION
     Dosage: 320 MG, 1X/DAY
     Route: 048
     Dates: start: 20150101, end: 201808

REACTIONS (3)
  - Renal cancer [Recovered/Resolved]
  - Pain [Unknown]
  - Nephrolithiasis [Recovered/Resolved]

NARRATIVE: CASE EVENT DATE: 201508
